FAERS Safety Report 19731098 (Version 2)
Quarter: 2021Q3

REPORT INFORMATION
  Report Type: Spontaneous
  Country: FR (occurrence: FR)
  Receive Date: 20210821
  Receipt Date: 20210829
  Transmission Date: 20211014
  Serious: Yes (Death)
  Sender: FDA-Public Use
  Company Number: FR-ACCORD-235924

PATIENT
  Age: 90 Year
  Sex: Male

DRUGS (10)
  1. RAMIPRIL. [Suspect]
     Active Substance: RAMIPRIL
     Indication: PRODUCT USED FOR UNKNOWN INDICATION
     Route: 048
     Dates: start: 20210707, end: 20210707
  2. LEVOTHYROX [Concomitant]
     Active Substance: LEVOTHYROXINE
  3. IRBESARTAN. [Concomitant]
     Active Substance: IRBESARTAN
  4. TAMSULOSIN/TAMSULOSIN HYDROCHLORIDE [Suspect]
     Active Substance: TAMSULOSIN HYDROCHLORIDE
     Route: 048
     Dates: start: 20210707, end: 20210707
  5. NEBIVOLOL. [Concomitant]
     Active Substance: NEBIVOLOL
  6. XARELTO [Suspect]
     Active Substance: RIVAROXABAN
     Route: 048
     Dates: start: 20210707, end: 20210707
  7. METFORMIN [Suspect]
     Active Substance: METFORMIN HYDROCHLORIDE
     Route: 048
     Dates: start: 20210707, end: 20210707
  8. LASILIX [Concomitant]
     Active Substance: FUROSEMIDE
  9. ELIQUIS [Suspect]
     Active Substance: APIXABAN
     Route: 048
     Dates: start: 20210707, end: 20210707
  10. MACROGOL 4000 ARROW [Concomitant]
     Dosage: 10 G, POWDER FOR ORAL SOLUTION IN SACHET

REACTIONS (2)
  - Wrong patient received product [Unknown]
  - Sudden death [Fatal]

NARRATIVE: CASE EVENT DATE: 20210707
